FAERS Safety Report 14019160 (Version 1)
Quarter: 2017Q3

REPORT INFORMATION
  Report Type: Spontaneous
  Country: US (occurrence: US)
  Receive Date: 20170928
  Receipt Date: 20170928
  Transmission Date: 20171128
  Serious: No
  Sender: FDA-Public Use
  Company Number: US-ASTRAZENECA-2017SE96116

PATIENT
  Age: 18384 Day
  Sex: Male
  Weight: 88.5 kg

DRUGS (1)
  1. BYDUREON [Suspect]
     Active Substance: EXENATIDE
     Indication: TYPE 2 DIABETES MELLITUS
     Route: 058
     Dates: start: 2016

REACTIONS (7)
  - Underdose [Unknown]
  - Weight fluctuation [Unknown]
  - Injection site pain [Unknown]
  - Decreased appetite [Unknown]
  - Device malfunction [Unknown]
  - Glycosylated haemoglobin increased [Unknown]
  - Injection site nodule [Not Recovered/Not Resolved]

NARRATIVE: CASE EVENT DATE: 201708
